FAERS Safety Report 4968973-6 (Version None)
Quarter: 2006Q2

REPORT INFORMATION
  Report Type: 
  Country: None (occurrence: None)
  Receive Date: 20060411
  Receipt Date: 20060225
  Transmission Date: 20061013
  Serious: Yes (Hospitalization, Other)
  Sender: FDA-Public Use
  Company Number: PHBS2006IE03182

PATIENT
  Age: 32 Year
  Sex: Female

DRUGS (2)
  1. TRILEPTAL [Suspect]
     Dosage: 600 MG, BID
     Route: 065
  2. TRILEPTAL [Suspect]
     Dosage: 900 MG, BID
     Route: 065
     Dates: start: 20060215

REACTIONS (3)
  - CONVULSION [None]
  - FATIGUE [None]
  - NEOPLASM RECURRENCE [None]
